FAERS Safety Report 7041091-1 (Version None)
Quarter: 2010Q4

REPORT INFORMATION
  Report Type: 
  Country: None (occurrence: None)
  Receive Date: 20101006
  Receipt Date: 20100930
  Transmission Date: 20110411
  Serious: Yes (Other)
  Sender: FDA-Public Use
  Company Number: 2010SP049478

PATIENT
  Age: 58 Year
  Sex: Male

DRUGS (5)
  1. PEG-INTRON [Suspect]
     Indication: HEPATITIS C
     Dosage: SC
     Route: 058
  2. REBETOL [Suspect]
     Indication: HEPATITIS C
     Dosage: PO
  3. INTRON A [Suspect]
     Indication: HEPATITIS C
     Dosage: IM
     Route: 030
  4. INTERFERON [Suspect]
     Indication: HEPATITIS C
  5. INSULIN [Concomitant]

REACTIONS (5)
  - DIABETES MELLITUS [None]
  - HEPATIC CIRRHOSIS [None]
  - LIVER TRANSPLANT [None]
  - NEPHRITIC SYNDROME [None]
  - RETINOPATHY [None]
